FAERS Safety Report 26189616 (Version 1)
Quarter: 2025Q4

REPORT INFORMATION
  Report Type: Spontaneous
  Country: JP (occurrence: JP)
  Receive Date: 20251223
  Receipt Date: 20251223
  Transmission Date: 20260118
  Serious: Yes (Death, Hospitalization)
  Sender: MERCK SHARP & DOHME LLC
  Company Number: JP-009507513-2362170

PATIENT
  Age: 67 Year
  Sex: Female
  Weight: 50 kg

DRUGS (10)
  1. KEYTRUDA [Suspect]
     Active Substance: PEMBROLIZUMAB
     Indication: Transitional cell cancer of the renal pelvis and ureter
     Route: 041
     Dates: start: 20250725, end: 20250725
  2. PADCEV [Concomitant]
     Active Substance: ENFORTUMAB VEDOTIN-EJFV
     Route: 041
     Dates: start: 20250725, end: 20250801
  3. Oxycodone SR Capsules 5mg [Concomitant]
     Route: 048
  4. ZICTHORU Tapes75mg [Concomitant]
     Route: 050
     Dates: start: 20250729, end: 20250809
  5. Novamin Tablets 5 mg [Concomitant]
     Route: 048
     Dates: start: 20250729, end: 20250808
  6. Amitiza 12 mg [Concomitant]
     Route: 048
     Dates: start: 20250716, end: 20250808
  7. Symproic Tablets 0.2mg [Concomitant]
     Route: 048
     Dates: start: 20250803, end: 20250807
  8. RANMARK SUBCUTANEOUS INJECTION 120 mg [Concomitant]
     Route: 050
     Dates: start: 20250805, end: 20250805
  9. CALCIUM CARBONATE\CHOLECALCIFEROL\MAGNESIUM CARBONATE [Concomitant]
     Active Substance: CALCIUM CARBONATE\CHOLECALCIFEROL\MAGNESIUM CARBONATE
     Route: 048
     Dates: start: 20250806, end: 20250807
  10. TAZOPIPE for Combination Intravenous 4.5 [Concomitant]
     Route: 041
     Dates: start: 20250728, end: 20250807

REACTIONS (1)
  - Cytokine release syndrome [Fatal]

NARRATIVE: CASE EVENT DATE: 20250807
